FAERS Safety Report 11745176 (Version 1)
Quarter: 2015Q4

REPORT INFORMATION
  Report Type: Report from Study
  Country: NL (occurrence: NL)
  Receive Date: 20151117
  Receipt Date: 20151117
  Transmission Date: 20160304
  Serious: Yes (Other)
  Sender: FDA-Public Use
  Company Number: NL-ROCHE-1661726

PATIENT
  Age: 59 Year

DRUGS (4)
  1. INTERFERON ALFA-2B [Suspect]
     Active Substance: INTERFERON ALFA-2B
     Indication: OVARIAN EPITHELIAL CANCER
     Route: 058
  2. DOXORUBICIN [Suspect]
     Active Substance: DOXORUBICIN
     Indication: OVARIAN EPITHELIAL CANCER
     Dosage: DAY 1, Q4 WEEKS FOR EVERY SIX CYCLES
     Route: 042
  3. CARBOPLATIN. [Suspect]
     Active Substance: CARBOPLATIN
     Indication: OVARIAN EPITHELIAL CANCER
     Dosage: AUC5; DAY 1, Q4 WEEKS FOR EVERY SIX CYCLES
     Route: 065
  4. TOCILIZUMAB [Suspect]
     Active Substance: TOCILIZUMAB
     Indication: OVARIAN EPITHELIAL CANCER
     Dosage: 8 MG/ML
     Route: 042

REACTIONS (1)
  - Neuralgia [Unknown]
